FAERS Safety Report 18223318 (Version 1)
Quarter: 2020Q3

REPORT INFORMATION
  Report Type: Spontaneous
  Country: JP (occurrence: JP)
  Receive Date: 20200902
  Receipt Date: 20200902
  Transmission Date: 20201103
  Serious: Yes (Hospitalization)
  Sender: FDA-Public Use
  Company Number: JP-SA-2020SA199158

PATIENT

DRUGS (5)
  1. ATELEC [Concomitant]
     Active Substance: CILNIDIPINE
  2. AVAPRO [Suspect]
     Active Substance: IRBESARTAN
     Indication: HYPERTENSION
     Dosage: 200 MG, QD
     Route: 048
  3. ALDACTONE A [Concomitant]
     Active Substance: SPIRONOLACTONE
  4. EPADEL?S [Concomitant]
     Active Substance: ICOSAPENT ETHYL
  5. FRANDOL S [Concomitant]
     Active Substance: ISOSORBIDE DINITRATE

REACTIONS (1)
  - Dysphagia [Recovered/Resolved]

NARRATIVE: CASE EVENT DATE: 20200728
